FAERS Safety Report 8122203-5 (Version None)
Quarter: 2012Q1

REPORT INFORMATION
  Report Type: 
  Country: None (occurrence: None)
  Receive Date: 20120208
  Receipt Date: 20120127
  Transmission Date: 20120608
  Serious: Yes (Hospitalization)
  Sender: FDA-Public Use
  Company Number: US-BAYER-2011-092265

PATIENT
  Age: 46 Year
  Sex: Female
  Weight: 95.238 kg

DRUGS (3)
  1. YAZ [Suspect]
     Indication: PREMENSTRUAL SYNDROME
     Dosage: UNK
     Dates: start: 20060830, end: 20090924
  2. YAZ [Suspect]
  3. NSAID'S [Concomitant]
     Dosage: WITHIN MONTH OF ONSET

REACTIONS (2)
  - DEEP VEIN THROMBOSIS [None]
  - INJURY [None]
